FAERS Safety Report 9474976 (Version 1)
Quarter: 2013Q3

REPORT INFORMATION
  Report Type: Spontaneous
  Country: JP (occurrence: None)
  Receive Date: 20130820
  Receipt Date: 20130820
  Transmission Date: 20140515
  Serious: Yes (Hospitalization)
  Sender: FDA-Public Use
  Company Number: 7229277

PATIENT
  Age: 72 Year
  Sex: Female

DRUGS (2)
  1. LEVOTHYROXINE (LEVOTHYROXINE) [Suspect]
     Indication: PRODUCT USED FOR UNKNOWN INDICATION
  2. SORAFENIB [Suspect]
     Dates: start: 201104

REACTIONS (4)
  - Stomatitis [None]
  - Hepatocellular carcinoma [None]
  - Malignant neoplasm progression [None]
  - Erythema [None]
